FAERS Safety Report 5921742-2 (Version None)
Quarter: 2008Q4

REPORT INFORMATION
  Report Type: 
  Country: None (occurrence: None)
  Receive Date: 20081017
  Receipt Date: 20081007
  Transmission Date: 20090506
  Serious: Yes (Other)
  Sender: FDA-Public Use
  Company Number: US-ABBOTT-08P-163-0475435-00

PATIENT
  Sex: Female
  Weight: 89.892 kg

DRUGS (1)
  1. HUMIRA [Suspect]
     Indication: PSORIATIC ARTHROPATHY
     Dates: start: 20060222, end: 20080301

REACTIONS (2)
  - ABDOMINAL PAIN [None]
  - RENAL CELL CARCINOMA [None]
